FAERS Safety Report 8048156-6 (Version None)
Quarter: 2012Q1

REPORT INFORMATION
  Report Type: 
  Country: None (occurrence: None)
  Receive Date: 20120113
  Receipt Date: 20120113
  Transmission Date: 20120608
  Serious: Yes (Hospitalization)
  Sender: FDA-Public Use
  Company Number: None

PATIENT
  Age: 66 Year
  Sex: Male
  Weight: 94 kg

DRUGS (1)
  1. SIMVASTATIN [Suspect]
     Dosage: 80 MG HS PO
     Route: 048
     Dates: start: 20110217, end: 20110621

REACTIONS (1)
  - RHABDOMYOLYSIS [None]
